FAERS Safety Report 16680825 (Version 2)
Quarter: 2020Q2

REPORT INFORMATION
  Report Type: Spontaneous
  Country: US (occurrence: US)
  Receive Date: 20190808
  Receipt Date: 20200526
  Transmission Date: 20200713
  Serious: No
  Sender: FDA-Public Use
  Company Number: US-ELI_LILLY_AND_COMPANY-US201908000683

PATIENT
  Sex: Female

DRUGS (4)
  1. LANTUS [Concomitant]
     Active Substance: INSULIN GLARGINE
     Indication: TYPE 1 DIABETES MELLITUS
     Dosage: 18 U
  2. ULTRALENTE INSULIN [Concomitant]
     Indication: TYPE 1 DIABETES MELLITUS
  3. HUMALOG [Suspect]
     Active Substance: INSULIN LISPRO
     Indication: TYPE 1 DIABETES MELLITUS
     Dosage: 30-35 U, PRN
     Route: 058
     Dates: start: 1992
  4. HUMALOG [Suspect]
     Active Substance: INSULIN LISPRO
     Dosage: 30-35 U, PRN
     Route: 058

REACTIONS (1)
  - Maternal exposure during pregnancy [Recovered/Resolved]
